FAERS Safety Report 8052742-7 (Version None)
Quarter: 2012Q1

REPORT INFORMATION
  Report Type: 
  Country: None (occurrence: None)
  Receive Date: 20120117
  Receipt Date: 20120117
  Transmission Date: 20120608
  Serious: Yes (Hospitalization)
  Sender: FDA-Public Use
  Company Number: None

PATIENT
  Age: 65 Year
  Sex: Male
  Weight: 125 kg

DRUGS (1)
  1. WARFARIN SODIUM [Suspect]
     Dates: start: 20110605, end: 20110625

REACTIONS (1)
  - POST PROCEDURAL HAEMORRHAGE [None]
